FAERS Safety Report 15282506 (Version 3)
Quarter: 2018Q4

REPORT INFORMATION
  Report Type: Spontaneous
  Country: CA (occurrence: CA)
  Receive Date: 20180816
  Receipt Date: 20181004
  Transmission Date: 20190204
  Serious: Yes (Other)
  Sender: FDA-Public Use
  Company Number: CA-CELLTRION INC.-2018CA021721

PATIENT

DRUGS (11)
  1. CORTIFOAM [Concomitant]
     Active Substance: HYDROCORTISONE ACETATE
     Dosage: UNK
  2. MIDAZOLAM [Concomitant]
     Active Substance: MIDAZOLAM HYDROCHLORIDE
     Dosage: UNK
     Dates: start: 20180628, end: 20180628
  3. INFLECTRA [Suspect]
     Active Substance: INFLIXIMAB-DYYB
     Dosage: 800 MG, CYCLIC (EVERY 4    WEEKS); INTRAVENOUS
     Route: 042
     Dates: start: 20171020, end: 20180112
  4. INFLECTRA [Suspect]
     Active Substance: INFLIXIMAB-DYYB
     Dosage: 800 MG, CYCLIC (EVERY 4    WEEKS); INTRAVENOUS
     Route: 042
     Dates: start: 20180920
  5. FOLIC ACID. [Concomitant]
     Active Substance: FOLIC ACID
     Dosage: UNK
  6. FENTANYL. [Concomitant]
     Active Substance: FENTANYL
     Dosage: UNK
     Dates: start: 20180628, end: 20180628
  7. METHOTREXATE. [Concomitant]
     Active Substance: METHOTREXATE
     Dosage: UNK
  8. TYLENOL WITH CODEINE [Concomitant]
     Active Substance: ACETAMINOPHEN\CODEINE PHOSPHATE
     Dosage: UNK
  9. INFLECTRA [Suspect]
     Active Substance: INFLIXIMAB-DYYB
     Indication: CROHN^S DISEASE
     Dosage: 700 MG, CYCLIC (EVERY 0,2 WEEKS, THEN EVERY 8 WEEKS)
     Route: 042
     Dates: start: 20170629, end: 20171006
  10. INFLECTRA [Suspect]
     Active Substance: INFLIXIMAB-DYYB
     Dosage: 800 MG, CYCLIC (EVERY 4    WEEKS); INTRAVENOUS
     Route: 042
     Dates: start: 20180221
  11. PREDNISONE. [Concomitant]
     Active Substance: PREDNISONE
     Dosage: UNK

REACTIONS (9)
  - Drug ineffective [Unknown]
  - Rectal polyp [Recovered/Resolved]
  - Wound secretion [Recovered/Resolved]
  - Product use issue [Unknown]
  - Incorrect product administration duration [Unknown]
  - Faecal calprotectin increased [Unknown]
  - Drug level above therapeutic [Unknown]
  - Haemorrhoids [Unknown]
  - Product use issue [Unknown]

NARRATIVE: CASE EVENT DATE: 20180628
